FAERS Safety Report 19496711 (Version 1)
Quarter: 2021Q3

REPORT INFORMATION
  Report Type: Spontaneous
  Country: US (occurrence: US)
  Receive Date: 20210703
  Receipt Date: 20210703
  Transmission Date: 20211014
  Serious: Yes (Hospitalization)
  Sender: FDA-Public Use
  Company Number: None

PATIENT
  Age: 37 Year
  Sex: Female
  Weight: 67.05 kg

DRUGS (6)
  1. MAGNESIUM [Concomitant]
     Active Substance: MAGNESIUM
  2. NUTRAFOL [Concomitant]
  3. PROZAC [Concomitant]
     Active Substance: FLUOXETINE HYDROCHLORIDE
  4. LILETTA [Suspect]
     Active Substance: LEVONORGESTREL
     Indication: CONTRACEPTION
     Dates: start: 20201219, end: 20210612
  5. POTASSIUM [Concomitant]
     Active Substance: POTASSIUM
  6. SUPER COMPLEX B [Concomitant]

REACTIONS (6)
  - Urticaria [None]
  - Anxiety [None]
  - Premenstrual syndrome [None]
  - Complication associated with device [None]
  - Dry mouth [None]
  - Motion sickness [None]

NARRATIVE: CASE EVENT DATE: 20210612
